FAERS Safety Report 7997966-X (Version None)
Quarter: 2011Q4

REPORT INFORMATION
  Report Type: 
  Country: None (occurrence: None)
  Receive Date: 20111221
  Receipt Date: 20111219
  Transmission Date: 20120403
  Serious: Yes (Hospitalization)
  Sender: FDA-Public Use
  Company Number: PHHO2011FI021086

PATIENT
  Sex: Male
  Weight: 75.4 kg

DRUGS (3)
  1. EMGESAN [Concomitant]
     Indication: MUSCULOSKELETAL PAIN
     Dosage: 250 MG, BID
     Route: 048
     Dates: start: 20110314
  2. TASIGNA [Suspect]
     Indication: CHRONIC MYELOID LEUKAEMIA
     Dosage: 300 MG, BID
     Route: 048
     Dates: start: 20080306
  3. PRAVASTATIN [Concomitant]
     Indication: PROPHYLAXIS
     Dosage: 40 MG, BID
     Route: 048
     Dates: start: 20080725

REACTIONS (2)
  - CONCOMITANT DISEASE PROGRESSION [None]
  - ARTERIAL STENOSIS LIMB [None]
